FAERS Safety Report 23336263 (Version 1)
Quarter: 2023Q4

REPORT INFORMATION
  Report Type: Spontaneous
  Country: SK (occurrence: SK)
  Receive Date: 20231225
  Receipt Date: 20231225
  Transmission Date: 20240109
  Serious: Yes (Other)
  Sender: FDA-Public Use
  Company Number: SK-ELI_LILLY_AND_COMPANY-SK202312010451

PATIENT
  Age: 68 Year
  Sex: Male
  Weight: 198 kg

DRUGS (1)
  1. MOUNJARO [Suspect]
     Active Substance: TIRZEPATIDE
     Indication: Product used for unknown indication
     Dosage: UNK UNK, UNKNOWN
     Route: 065

REACTIONS (7)
  - Colon cancer [Unknown]
  - Occult blood [Unknown]
  - Hypochromic anaemia [Unknown]
  - Obesity [Unknown]
  - Type 2 diabetes mellitus [Unknown]
  - Constipation [Unknown]
  - Intentional product misuse [Unknown]
